FAERS Safety Report 5713572-1 (Version None)
Quarter: 2008Q2

REPORT INFORMATION
  Report Type: 
  Country: None (occurrence: None)
  Receive Date: 20080422
  Receipt Date: 20080414
  Transmission Date: 20081010
  Serious: Yes (Hospitalization)
  Sender: FDA-Public Use
  Company Number: US-ELI_LILLY_AND_COMPANY-US200804004086

PATIENT
  Sex: Female

DRUGS (8)
  1. BYETTA [Suspect]
     Dosage: 5 UG, 2/D
     Route: 058
     Dates: start: 20080301, end: 20080401
  2. BYETTA [Suspect]
     Dosage: 10 UG, 2/D
     Route: 058
     Dates: start: 20080401
  3. PIOGLITAZONE [Concomitant]
     Dosage: 15 MG, UNK
     Dates: end: 20080301
  4. PIOGLITAZONE [Concomitant]
     Dosage: 15 MG, DAILY (1/D)
     Dates: start: 20080407
  5. METFORMIN HCL [Concomitant]
     Dosage: 850 MG, UNK
     Dates: end: 20080301
  6. METFORMIN HCL [Concomitant]
     Dosage: 500 MG, 2/D
  7. GLIPIZIDE [Concomitant]
     Dosage: 5 MG, 2/D
  8. CELEBREX [Concomitant]
     Indication: BACK PAIN
     Dates: end: 20080301

REACTIONS (6)
  - ARTHRITIS [None]
  - BACK PAIN [None]
  - BLOOD GLUCOSE INCREASED [None]
  - HYPOAESTHESIA [None]
  - PAIN [None]
  - URINARY TRACT INFECTION [None]
